FAERS Safety Report 23300567 (Version 2)
Quarter: 2024Q1

REPORT INFORMATION
  Report Type: Spontaneous
  Country: US (occurrence: US)
  Receive Date: 20231215
  Receipt Date: 20240209
  Transmission Date: 20240410
  Serious: Yes (Other)
  Sender: FDA-Public Use
  Company Number: US-ALVOGEN-2023092735

PATIENT
  Age: 74 Year
  Sex: Female

DRUGS (1)
  1. LEVOTHYROXINE [Suspect]
     Active Substance: LEVOTHYROXINE\LEVOTHYROXINE SODIUM
     Indication: Hypothyroidism
     Dosage: 25 MCG?START DATE: AT THE END OF MAY-2021
     Dates: start: 202105, end: 20231205

REACTIONS (8)
  - Neuropathy peripheral [Unknown]
  - Adverse event [Unknown]
  - Hypoacusis [Unknown]
  - Dysuria [Unknown]
  - Malaise [Unknown]
  - Peripheral swelling [Unknown]
  - Nausea [Unknown]
  - Drug ineffective [Unknown]
